FAERS Safety Report 11216833 (Version 1)
Quarter: 2015Q2

REPORT INFORMATION
  Report Type: Spontaneous
  Country: US (occurrence: US)
  Receive Date: 20150624
  Receipt Date: 20150624
  Transmission Date: 20150821
  Serious: Yes (Other)
  Sender: FDA-Public Use
  Company Number: US-ABBVIE-15P-163-1413687-00

PATIENT
  Sex: Male

DRUGS (1)
  1. ANDROGEL [Suspect]
     Active Substance: TESTOSTERONE
     Indication: ANDROGEN REPLACEMENT THERAPY
     Route: 061
     Dates: start: 201302, end: 201308

REACTIONS (5)
  - Cerebrovascular accident [Unknown]
  - Economic problem [Unknown]
  - Loss of employment [Unknown]
  - Venous thrombosis limb [Unknown]
  - Pain [Unknown]

NARRATIVE: CASE EVENT DATE: 201306
